FAERS Safety Report 5970019-8 (Version None)
Quarter: 2008Q4

REPORT INFORMATION
  Report Type: 
  Country: None (occurrence: None)
  Receive Date: 20081126
  Receipt Date: 20081119
  Transmission Date: 20090506
  Serious: No
  Sender: FDA-Public Use
  Company Number: JP-MERCK-0811USA03589B1

PATIENT
  Sex: Female
  Weight: 3 kg

DRUGS (3)
  1. DECADRON [Suspect]
     Indication: IMMUNISATION REACTION
     Route: 064
  2. DECADRON [Suspect]
     Indication: PROPHYLAXIS
     Route: 064
  3. RITODRINE HYDROCHLORIDE [Concomitant]
     Route: 064

REACTIONS (2)
  - ATRIOVENTRICULAR BLOCK [None]
  - FOETAL HEART RATE INCREASED [None]
